FAERS Safety Report 4570265-4 (Version None)
Quarter: 2005Q1

REPORT INFORMATION
  Report Type: 
  Country: None (occurrence: None)
  Receive Date: 20050202
  Receipt Date: 20050121
  Transmission Date: 20050727
  Serious: Yes (Hospitalization, Other)
  Sender: FDA-Public Use
  Company Number: DEU-2005-0001230

PATIENT
  Sex: Male

DRUGS (3)
  1. OXYCODONE HCL [Suspect]
     Indication: PAIN
     Dosage: 20 MG BID ORAL
     Route: 048
     Dates: start: 20041001, end: 20050105
  2. ANTIEPILEPTICS [Concomitant]
  3. INSULIN [Concomitant]

REACTIONS (5)
  - CHILLS [None]
  - DYSPNOEA [None]
  - HYPERHIDROSIS [None]
  - MUSCLE SPASMS [None]
  - PYREXIA [None]
